FAERS Safety Report 11418657 (Version 3)
Quarter: 2015Q4

REPORT INFORMATION
  Report Type: Spontaneous
  Country: US (occurrence: US)
  Receive Date: 20150826
  Receipt Date: 20151110
  Transmission Date: 20160304
  Serious: Yes (Other)
  Sender: FDA-Public Use
  Company Number: US-ROCHE-1626193

PATIENT
  Age: 69 Year
  Sex: Female

DRUGS (7)
  1. GLIMEPIRIDE. [Concomitant]
     Active Substance: GLIMEPIRIDE
     Indication: DIABETES MELLITUS
     Route: 048
  2. ALBUTEROL. [Concomitant]
     Active Substance: ALBUTEROL
     Indication: COUGH
     Dosage: 2.5/3ML
     Route: 048
  3. ESBRIET [Suspect]
     Active Substance: PIRFENIDONE
     Route: 048
     Dates: start: 201505
  4. SYMBICORT [Concomitant]
     Active Substance: BUDESONIDE\FORMOTEROL FUMARATE DIHYDRATE
     Indication: COUGH
     Dosage: 165/45
     Route: 048
  5. LASIX [Concomitant]
     Active Substance: FUROSEMIDE
     Indication: OEDEMA
     Route: 048
  6. ESBRIET [Suspect]
     Active Substance: PIRFENIDONE
     Indication: IDIOPATHIC PULMONARY FIBROSIS
     Route: 048
     Dates: start: 20150416
  7. PREDNISONE. [Concomitant]
     Active Substance: PREDNISONE
     Indication: COUGH
     Route: 048

REACTIONS (1)
  - Hot flush [Recovered/Resolved]

NARRATIVE: CASE EVENT DATE: 20150815
